FAERS Safety Report 5643015-8 (Version None)
Quarter: 2008Q1

REPORT INFORMATION
  Report Type: 
  Country: None (occurrence: None)
  Receive Date: 20080228
  Receipt Date: 20080213
  Transmission Date: 20080703
  Serious: Yes (Hospitalization, Other)
  Sender: FDA-Public Use
  Company Number: US-ROCHE-536129

PATIENT
  Age: 35 Year
  Sex: Female

DRUGS (2)
  1. PEG-INTERFERON A-2A (RO 25-8310) [Suspect]
     Indication: HEPATITIS C
     Dosage: REPORTED AS PEGASYS. FORMULATION: PREFILLED SYRINGE. IN WEEK 18 OF THERAPY.
     Route: 065
     Dates: start: 20071017
  2. RIBAVIRIN [Suspect]
     Indication: HEPATITIS C
     Dosage: REPORTED AS COPEGUS. IN WEEK 18 OF THERAPY.
     Route: 065
     Dates: start: 20071017

REACTIONS (3)
  - FALL [None]
  - HEAD INJURY [None]
  - OVARIAN CYST RUPTURED [None]
